FAERS Safety Report 8908278 (Version 1)
Quarter: 2012Q4

REPORT INFORMATION
  Report Type: 
  Country: US (occurrence: US)
  Receive Date: 20121113
  Receipt Date: 20121113
  Transmission Date: 20130627
  Serious: No
  Sender: FDA-Public Use
  Company Number: US-AMGEN-USASP2012043777

PATIENT
  Age: 88 Year
  Sex: Male

DRUGS (6)
  1. ARANESP [Suspect]
     Indication: PRODUCT USED FOR UNKNOWN INDICATION
     Dosage: 300 mug, q3wk
  2. WARFARIN [Interacting]
  3. GLIPIZIDE [Concomitant]
  4. INSULIN [Concomitant]
  5. CYCLOPHOSPHAMIDE [Concomitant]
  6. CYCLOSPORINE [Concomitant]
     Dosage: UNK

REACTIONS (2)
  - Blood glucose increased [Unknown]
  - Drug interaction [Unknown]
